FAERS Safety Report 20336071 (Version 2)
Quarter: 2022Q1

REPORT INFORMATION
  Report Type: Spontaneous
  Country: US (occurrence: US)
  Receive Date: 20220114
  Receipt Date: 20220117
  Transmission Date: 20220423
  Serious: Yes (Other)
  Sender: FDA-Public Use
  Company Number: US-009507513-2201USA001987

PATIENT
  Age: 75 Year
  Sex: Male

DRUGS (1)
  1. KEYTRUDA [Suspect]
     Active Substance: PEMBROLIZUMAB
     Indication: Bladder cancer
     Dosage: EVERY 3 WEEKS
     Route: 042
     Dates: start: 202002, end: 20211221

REACTIONS (4)
  - Malignant neoplasm progression [Recovering/Resolving]
  - Renal impairment [Recovering/Resolving]
  - Ureteric obstruction [Unknown]
  - Surgery [Unknown]

NARRATIVE: CASE EVENT DATE: 20211228
